FAERS Safety Report 7941550-0 (Version None)
Quarter: 2011Q4

REPORT INFORMATION
  Report Type: 
  Country: None (occurrence: None)
  Receive Date: 20111128
  Receipt Date: 20111123
  Transmission Date: 20120403
  Serious: Yes (Other)
  Sender: FDA-Public Use
  Company Number: US-JNJFOC-20111000989

PATIENT
  Sex: Female

DRUGS (2)
  1. TRAMADOL HCL [Suspect]
     Indication: PRODUCT USED FOR UNKNOWN INDICATION
     Dosage: EVERY 6 HOURS
     Route: 065
  2. NUCYNTA [Suspect]
     Indication: BACK PAIN
     Dosage: TWICE A DAY
     Route: 048
     Dates: start: 20110601, end: 20110601

REACTIONS (3)
  - VERTIGO [None]
  - CONFUSIONAL STATE [None]
  - DIZZINESS [None]
